FAERS Safety Report 21809985 (Version 1)
Quarter: 2023Q1

REPORT INFORMATION
  Report Type: Spontaneous
  Country: CN (occurrence: CN)
  Receive Date: 20230103
  Receipt Date: 20230103
  Transmission Date: 20230417
  Serious: Yes (Death, Life-Threatening, Hospitalization, Other)
  Sender: FDA-Public Use
  Company Number: CN-MLMSERVICE-20221220-3748638-1

PATIENT
  Age: 52 Year
  Sex: Male

DRUGS (5)
  1. CAPECITABINE [Suspect]
     Active Substance: CAPECITABINE
     Indication: Metastases to lymph nodes
     Dosage: CAPECITABINE 1.5G ORAL BID D1-14 FOR 3 CYCLES
     Route: 048
     Dates: start: 2019
  2. OXALIPLATIN [Suspect]
     Active Substance: OXALIPLATIN
     Indication: Metastases to lymph nodes
     Dosage: D1
     Dates: start: 2019
  3. TEGAFUR [Suspect]
     Active Substance: TEGAFUR
     Indication: Metastases to lymph nodes
     Dosage: 60MG ORAL BID D1-14 FOR 3 CYCLES
     Route: 048
  4. OXALIPLATIN [Suspect]
     Active Substance: OXALIPLATIN
     Indication: Adenocarcinoma gastric
     Dosage: D1
     Dates: start: 2019
  5. CAPECITABINE [Suspect]
     Active Substance: CAPECITABINE
     Indication: Adenocarcinoma gastric
     Dosage: CAPECITABINE 1.5G ORAL BID D1-14 FOR 3 CYCLES
     Route: 048
     Dates: start: 2019

REACTIONS (2)
  - Acute promyelocytic leukaemia [Fatal]
  - Coma [Fatal]

NARRATIVE: CASE EVENT DATE: 20200101
